FAERS Safety Report 10088129 (Version 1)
Quarter: 2014Q2

REPORT INFORMATION
  Report Type: Spontaneous
  Country: AT (occurrence: AT)
  Receive Date: 20140421
  Receipt Date: 20140421
  Transmission Date: 20141212
  Serious: Yes (Hospitalization)
  Sender: FDA-Public Use
  Company Number: AT-009507513-1404AUT009615

PATIENT
  Age: 34 Year
  Sex: Male

DRUGS (2)
  1. BETAMETHASONE DIPROPIONATE [Suspect]
     Indication: DERMATITIS ATOPIC
     Dosage: INTERMITTENT
     Route: 061
  2. CORTISONE [Concomitant]
     Indication: DERMATITIS ATOPIC
     Dosage: THREE COURSES
     Route: 042

REACTIONS (1)
  - Secondary adrenocortical insufficiency [Unknown]
